FAERS Safety Report 24844202 (Version 1)
Quarter: 2025Q1

REPORT INFORMATION
  Report Type: Spontaneous
  Country: US (occurrence: US)
  Receive Date: 20250115
  Receipt Date: 20250115
  Transmission Date: 20250408
  Serious: Yes (Death)
  Sender: Kenvue
  Company Number: US-KENVUE-20250102970

PATIENT
  Age: 62 Year
  Sex: Female

DRUGS (9)
  1. ACETAMINOPHEN [Suspect]
     Active Substance: ACETAMINOPHEN
     Indication: Suicide attempt
     Route: 048
  2. METOPROLOL [Suspect]
     Active Substance: METOPROLOL
     Indication: Suicide attempt
     Route: 048
  3. LOSARTAN [Suspect]
     Active Substance: LOSARTAN
     Indication: Suicide attempt
     Route: 048
  4. MECLIZINE [Suspect]
     Active Substance: MECLIZINE HYDROCHLORIDE
     Indication: Suicide attempt
     Route: 048
  5. KETOROLAC [Suspect]
     Active Substance: KETOROLAC TROMETHAMINE
     Indication: Suicide attempt
     Route: 048
  6. SPIRONOLACTONE [Suspect]
     Active Substance: SPIRONOLACTONE
     Indication: Suicide attempt
     Route: 048
  7. ALCOHOL [Suspect]
     Active Substance: ALCOHOL
     Indication: Suicide attempt
     Route: 048
  8. ONDANSETRON [Suspect]
     Active Substance: ONDANSETRON
     Indication: Suicide attempt
     Route: 048
  9. OMEPRAZOLE [Suspect]
     Active Substance: OMEPRAZOLE
     Indication: Suicide attempt
     Route: 048

REACTIONS (1)
  - Toxicity to various agents [Fatal]
